FAERS Safety Report 6434964-1 (Version None)
Quarter: 2009Q4

REPORT INFORMATION
  Report Type: 
  Country: None (occurrence: None)
  Receive Date: 20091106
  Receipt Date: 20091028
  Transmission Date: 20100525
  Serious: Yes (Other)
  Sender: FDA-Public Use
  Company Number: MYVW-NO-0910S-0072

PATIENT
  Age: 61 Year
  Sex: Female

DRUGS (1)
  1. MYOVIEW [Suspect]
     Indication: DRUG USE FOR UNKNOWN INDICATION
     Dosage: SINGLE DOSE, I.V.
     Route: 042
     Dates: start: 20090101, end: 20090101

REACTIONS (1)
  - ERYTHEMA MULTIFORME [None]
